FAERS Safety Report 19636665 (Version 1)
Quarter: 2021Q3

REPORT INFORMATION
  Report Type: Spontaneous
  Country: US (occurrence: US)
  Receive Date: 20210730
  Receipt Date: 20210730
  Transmission Date: 20211014
  Serious: No
  Sender: FDA-Public Use
  Company Number: None

PATIENT
  Age: 60 Year
  Sex: Female

DRUGS (2)
  1. RIFAMPIN. [Suspect]
     Active Substance: RIFAMPIN
     Indication: MYCOBACTERIUM AVIUM COMPLEX INFECTION
  2. RIFAMPIN. [Suspect]
     Active Substance: RIFAMPIN
     Indication: LUNG DISORDER

REACTIONS (2)
  - Pruritus [None]
  - Adverse drug reaction [None]

NARRATIVE: CASE EVENT DATE: 20210730
